FAERS Safety Report 24674762 (Version 1)
Quarter: 2024Q4

REPORT INFORMATION
  Report Type: Spontaneous
  Country: US (occurrence: US)
  Receive Date: 20241128
  Receipt Date: 20241128
  Transmission Date: 20250115
  Serious: No
  Sender: CSL Plasma
  Company Number: US-CSLP-12805340298-V00GA9Z2-373

PATIENT
  Age: 50 Year
  Sex: Male

DRUGS (5)
  1. ANTICOAGULANT SODIUM CITRATE [Suspect]
     Active Substance: SODIUM CITRATE
     Indication: Anticoagulant therapy
     Route: 050
     Dates: start: 20241104, end: 20241104
  2. AMLODIPINE [Concomitant]
     Active Substance: AMLODIPINE BESYLATE
     Indication: Hypertension
  3. VITAMIN D2 [Concomitant]
     Active Substance: ERGOCALCIFEROL
     Indication: Product used for unknown indication
  4. CETIRIZINE [Concomitant]
     Active Substance: CETIRIZINE HYDROCHLORIDE
     Indication: Hypersensitivity
  5. SALINE [Concomitant]
     Active Substance: SODIUM CHLORIDE
     Indication: Product used for unknown indication
     Dates: start: 20241104, end: 20241104

REACTIONS (10)
  - Abdominal pain [Recovered/Resolved]
  - Dizziness [Recovered/Resolved]
  - Peripheral coldness [Recovered/Resolved]
  - Muscle twitching [Recovered/Resolved]
  - Nausea [Recovered/Resolved]
  - Feeling hot [Recovered/Resolved]
  - Thirst [Recovered/Resolved]
  - Hypoaesthesia [Recovered/Resolved]
  - Dyskinesia [Recovered/Resolved]
  - Paraesthesia [Recovered/Resolved]

NARRATIVE: CASE EVENT DATE: 20241104
